FAERS Safety Report 6033950-3 (Version None)
Quarter: 2009Q1

REPORT INFORMATION
  Report Type: 
  Country: None (occurrence: None)
  Receive Date: 20090112
  Receipt Date: 20090102
  Transmission Date: 20090719
  Serious: Yes (Other)
  Sender: FDA-Public Use
  Company Number: PHHY2009DE00490

PATIENT
  Sex: Female

DRUGS (6)
  1. RASILEZ [Suspect]
     Indication: HYPERTENSION
     Dosage: 150 MG, QD
     Route: 048
     Dates: start: 20081201, end: 20090101
  2. RASILEZ [Suspect]
     Dosage: 300 MG, QD
     Route: 048
     Dates: start: 20090102
  3. BELOC-ZOC FORTE [Concomitant]
     Dosage: 1 DF, BID
     Route: 048
  4. MICARDIS 60 PLUS [Concomitant]
     Dosage: UNK
     Route: 048
  5. NATRILIX - SLOW RELEASE [Concomitant]
     Dosage: 1 DF (1.5 MG), QD
     Route: 048
  6. DOXEPIN HCL [Concomitant]
     Dosage: 0.5 DF, QD
     Route: 048

REACTIONS (3)
  - BLOOD PRESSURE INCREASED [None]
  - PALPITATIONS [None]
  - TACHYCARDIA [None]
